FAERS Safety Report 9560721 (Version 2)
Quarter: 2013Q4

REPORT INFORMATION
  Report Type: Spontaneous
  Country: US (occurrence: US)
  Receive Date: 20130927
  Receipt Date: 20131115
  Transmission Date: 20140711
  Serious: No
  Sender: FDA-Public Use
  Company Number: US-BIOGENIDEC-2013BI053554

PATIENT
  Age: 50 Year
  Sex: Female

DRUGS (11)
  1. TECFIDERA [Suspect]
     Indication: MULTIPLE SCLEROSIS
     Route: 048
     Dates: start: 201303
  2. TECFIDERA [Suspect]
     Indication: MULTIPLE SCLEROSIS
     Route: 048
     Dates: start: 20130701
  3. TECFIDERA [Suspect]
     Indication: MULTIPLE SCLEROSIS
     Dates: start: 20130604
  4. CYMBALTA [Concomitant]
  5. AMBIEN [Concomitant]
  6. CELEBREX [Concomitant]
  7. VALIUM [Concomitant]
  8. ADDERALL [Concomitant]
  9. ZANAFLEX [Concomitant]
  10. VESICARE [Concomitant]
  11. HYDROCODONE [Concomitant]

REACTIONS (4)
  - Depression [Unknown]
  - Fatigue [Recovered/Resolved]
  - Flushing [Recovered/Resolved]
  - Diarrhoea [Recovered/Resolved]
